FAERS Safety Report 4852854-2 (Version None)
Quarter: 2005Q4

REPORT INFORMATION
  Report Type: 
  Country: None (occurrence: None)
  Receive Date: 20051125
  Receipt Date: 20050824
  Transmission Date: 20060501
  Serious: Yes (Other)
  Sender: FDA-Public Use
  Company Number: US-JNJFOC-20050805763

PATIENT
  Age: 65 Year
  Sex: Male

DRUGS (1)
  1. LEVAQUIN [Suspect]
     Indication: LUNG INFECTION PSEUDOMONAL
     Dosage: 750 MG, ORAL
     Route: 048
     Dates: start: 20050101, end: 20050101

REACTIONS (1)
  - TENDON RUPTURE [None]
